FAERS Safety Report 7603464-5 (Version None)
Quarter: 2011Q3

REPORT INFORMATION
  Report Type: 
  Country: None (occurrence: None)
  Receive Date: 20110711
  Receipt Date: 20110711
  Transmission Date: 20111222
  Serious: Yes (Other)
  Sender: FDA-Public Use
  Company Number: None

PATIENT
  Age: 48 Year
  Sex: Male
  Weight: 79.3795 kg

DRUGS (1)
  1. INDOMETHACIN [Suspect]
     Indication: JOINT ANKYLOSIS
     Dosage: 1 CAPSULE 2/DAY PO
     Route: 048
     Dates: start: 20110121, end: 20110208

REACTIONS (3)
  - ABDOMINAL PAIN UPPER [None]
  - GASTROINTESTINAL PAIN [None]
  - PRODUCT SUBSTITUTION ISSUE [None]
